FAERS Safety Report 21177801 (Version 1)
Quarter: 2022Q3

REPORT INFORMATION
  Report Type: Spontaneous
  Country: US (occurrence: None)
  Receive Date: 20220805
  Receipt Date: 20220805
  Transmission Date: 20221026
  Serious: Yes (Hospitalization)
  Sender: FDA-Public Use
  Company Number: None

PATIENT
  Age: 68 Year
  Sex: Female
  Weight: 61 kg

DRUGS (1)
  1. BREYANZI [Suspect]
     Active Substance: LISOCABTAGENE MARALEUCEL
     Indication: Follicular lymphoma
     Dates: start: 20220620, end: 20220620

REACTIONS (2)
  - Lymphocyte adoptive therapy [None]
  - Cytokine release syndrome [None]

NARRATIVE: CASE EVENT DATE: 20220620
